FAERS Safety Report 4623688-9 (Version None)
Quarter: 2005Q1

REPORT INFORMATION
  Report Type: 
  Country: None (occurrence: None)
  Receive Date: 20050331
  Receipt Date: 20050209
  Transmission Date: 20050727
  Serious: Yes (Hospitalization, Other)
  Sender: FDA-Public Use
  Company Number: 200510437EU

PATIENT
  Age: 73 Year
  Sex: Female

DRUGS (5)
  1. ARAVA [Suspect]
     Indication: RHEUMATOID ARTHRITIS
     Route: 048
     Dates: start: 20040101, end: 20050126
  2. VIOXX [Concomitant]
     Indication: RHEUMATOID ARTHRITIS
     Route: 048
     Dates: start: 20020301, end: 20041107
  3. EFFERALGAN [Concomitant]
     Route: 048
     Dates: start: 20020301, end: 20030307
  4. ANAGASTRA [Concomitant]
     Route: 048
     Dates: start: 20020301, end: 20050307
  5. AMILORIDE HCL AND HYDROCHLOROTHIAZIDE [Concomitant]
     Indication: OEDEMA
     Route: 048
     Dates: start: 20030601, end: 20050307

REACTIONS (12)
  - BACTERIA URINE IDENTIFIED [None]
  - LEUKOCYTOSIS [None]
  - PITYRIASIS ROSEA [None]
  - PSORIASIS [None]
  - PYREXIA [None]
  - RASH ERYTHEMATOUS [None]
  - RASH MACULAR [None]
  - SKIN DISORDER [None]
  - SKIN EXFOLIATION [None]
  - SKIN LESION [None]
  - STREPTOCOCCAL INFECTION [None]
  - SUPERINFECTION [None]
